FAERS Safety Report 7029679-5 (Version None)
Quarter: 2010Q4

REPORT INFORMATION
  Report Type: 
  Country: None (occurrence: None)
  Receive Date: 20101005
  Receipt Date: 20101005
  Transmission Date: 20110411
  Serious: Yes (Other)
  Sender: FDA-Public Use
  Company Number: None

PATIENT
  Sex: Male
  Weight: 136.9863 kg

DRUGS (2)
  1. ENBREL [Suspect]
     Indication: PSORIASIS
     Dosage: 50 MG BIW SQ 057 OFF AND ON
     Route: 058
     Dates: start: 20071001, end: 20100901
  2. METHOTREXATE [Concomitant]

REACTIONS (1)
  - NEUROPATHY PERIPHERAL [None]
